FAERS Safety Report 9179576 (Version 2)
Quarter: 2013Q1

REPORT INFORMATION
  Report Type: Spontaneous
  Country: JP (occurrence: JP)
  Receive Date: 20130321
  Receipt Date: 20130327
  Transmission Date: 20140127
  Serious: Yes (Hospitalization)
  Sender: FDA-Public Use
  Company Number: JP-B.I. PHARMACEUTICALS,INC./RIDGEFIELD-2013-BI-07412NB

PATIENT
  Age: 71 Year
  Sex: Male

DRUGS (3)
  1. SPIRIVA [Suspect]
     Indication: CHRONIC OBSTRUCTIVE PULMONARY DISEASE
     Dosage: 5 MCG
     Route: 055
     Dates: start: 20130305, end: 20130313
  2. LOXONIN [Concomitant]
     Dosage: 180 MG
     Route: 048
  3. SELBEX [Concomitant]
     Dosage: 150 MG
     Route: 048

REACTIONS (2)
  - Lung neoplasm malignant [Unknown]
  - Dysuria [Recovered/Resolved]
